FAERS Safety Report 24436780 (Version 1)
Quarter: 2024Q4

REPORT INFORMATION
  Report Type: Spontaneous
  Country: US (occurrence: US)
  Receive Date: 20241015
  Receipt Date: 20241015
  Transmission Date: 20250114
  Serious: No
  Sender: ABBVIE
  Company Number: US-ABBVIE-5959177

PATIENT
  Age: 29 Year
  Sex: Female

DRUGS (1)
  1. LILETTA [Suspect]
     Active Substance: LEVONORGESTREL
     Indication: Prophylaxis
     Dosage: TIME INTERVAL: AS NECESSARY
     Route: 015
     Dates: start: 20240310, end: 20240824

REACTIONS (2)
  - Device expulsion [Unknown]
  - Procedural pain [Unknown]

NARRATIVE: CASE EVENT DATE: 20240310
